FAERS Safety Report 10723612 (Version 1)
Quarter: 2015Q1

REPORT INFORMATION
  Report Type: Spontaneous
  Country: FR (occurrence: None)
  Receive Date: 20150115
  Receipt Date: 20150115
  Transmission Date: 20150721
  Serious: Yes (Disabling, Other)
  Sender: FDA-Public Use
  Company Number: FR2015GSK001839

PATIENT
  Age: 52 Year
  Sex: Female

DRUGS (12)
  1. KIVEXA [Suspect]
     Active Substance: ABACAVIR SULFATE\LAMIVUDINE
     Indication: HIV TEST POSITIVE
     Dosage: 1 UNK, 1D, ORAL
     Route: 048
     Dates: start: 20110915
  2. AUGMENTIN (AMOXICILLIN TRIHYDRATE, POTASSIUM CLAVULANATE) [Concomitant]
  3. CLAMOXYL (AMOXICILLIN TRIHYDRATE) [Concomitant]
     Active Substance: AMOXICILLIN
  4. INTELENCE (ETRAVIRINE) [Concomitant]
  5. PRIMPERAN [Concomitant]
     Active Substance: METOCLOPRAMIDE HYDROCHLORIDE
  6. FLANID (TIAPROFENIC ACID) [Concomitant]
  7. APROVEL (IRBESARTAN) [Concomitant]
  8. ZELITREX (VALACICLOVIR HYDORCHLORIDE) [Concomitant]
  9. TIVICAY (DOLUTEGRAVIR)? [Concomitant]
  10. STILNOX (ZOLPIDEM TARTRATE) FILM-COATED TABLET [Concomitant]
     Active Substance: ZOLPIDEM TARTRATE
  11. CO-APROVEL (HYDROCHLOROTHIAZIDE + IRBESARTAN)??? [Concomitant]
  12. IMODIUM [Concomitant]
     Active Substance: LOPERAMIDE HYDROCHLORIDE

REACTIONS (2)
  - Leukopenia [None]
  - Osteonecrosis [None]

NARRATIVE: CASE EVENT DATE: 201405
